FAERS Safety Report 14300253 (Version 1)
Quarter: 2017Q4

REPORT INFORMATION
  Report Type: Spontaneous
  Country: US (occurrence: US)
  Receive Date: 20171219
  Receipt Date: 20171219
  Transmission Date: 20180321
  Serious: Yes (Hospitalization, Other)
  Sender: FDA-Public Use
  Company Number: US-TEVA-719596USA

PATIENT

DRUGS (3)
  1. AZITHROMYCIN ANHYDROUS. [Suspect]
     Active Substance: AZITHROMYCIN ANHYDROUS
     Dates: end: 2016
  2. BIAXIN [Suspect]
     Active Substance: CLARITHROMYCIN
     Dates: start: 201610, end: 20161024
  3. VANCOMYCIN [Suspect]
     Active Substance: VANCOMYCIN
     Dates: end: 2016

REACTIONS (3)
  - Hypersensitivity [Unknown]
  - Pneumonia [Unknown]
  - Blood sodium decreased [Unknown]

NARRATIVE: CASE EVENT DATE: 201610
